FAERS Safety Report 8772503 (Version 2)
Quarter: 2012Q4

REPORT INFORMATION
  Report Type: 
  Country: FR (occurrence: FR)
  Receive Date: 20120905
  Receipt Date: 20121022
  Transmission Date: 20130627
  Serious: Yes (Hospitalization, Other)
  Sender: FDA-Public Use
  Company Number: FR-PFIZER INC-2012212156

PATIENT
  Age: 76 Year
  Sex: Male

DRUGS (4)
  1. VIAGRA [Suspect]
     Dosage: UNK
     Route: 048
     Dates: start: 20120727
  2. COUMADINE [Suspect]
     Dosage: 2 mg
     Route: 048
  3. OMEPRAZOLE [Concomitant]
     Dosage: 20 mg
  4. HEMIGOXINE NATIVELLE [Concomitant]
     Dosage: 1 tablet

REACTIONS (6)
  - Haemorrhagic stroke [Recovered/Resolved with Sequelae]
  - Dysarthria [Recovered/Resolved with Sequelae]
  - Paralysis [Recovered/Resolved]
  - Rash [Recovered/Resolved]
  - Headache [Recovered/Resolved]
  - Hypertension [Unknown]
